FAERS Safety Report 17931068 (Version 1)
Quarter: 2020Q2

REPORT INFORMATION
  Report Type: Spontaneous
  Country: US (occurrence: US)
  Receive Date: 20200623
  Receipt Date: 20200623
  Transmission Date: 20200714
  Serious: No
  Sender: FDA-Public Use
  Company Number: US-FRESENIUS KABI-FK202006285

PATIENT
  Age: 31 Year
  Sex: Female

DRUGS (1)
  1. MAGNESIUM SULFATE (MANUFACTURER UNKNOWN) [Suspect]
     Active Substance: MAGNESIUM SULFATE
     Indication: PRE-ECLAMPSIA
     Route: 065
     Dates: start: 202004, end: 202004

REACTIONS (4)
  - Disorientation [Unknown]
  - Disorganised speech [Unknown]
  - Adverse reaction [Unknown]
  - Dyspnoea [Unknown]

NARRATIVE: CASE EVENT DATE: 202004
